FAERS Safety Report 5894762-4 (Version None)
Quarter: 2008Q3

REPORT INFORMATION
  Report Type: 
  Country: None (occurrence: None)
  Receive Date: 20080924
  Receipt Date: 20080728
  Transmission Date: 20090109
  Serious: No
  Sender: FDA-Public Use
  Company Number: US-ASTRAZENECA-2008UW08492

PATIENT
  Age: 14 Year
  Sex: Male
  Weight: 59.9 kg

DRUGS (5)
  1. SEROQUEL [Suspect]
     Indication: IRRITABILITY
     Route: 048
     Dates: start: 20080328
  2. SEROQUEL [Suspect]
     Indication: OBSESSIVE-COMPULSIVE DISORDER
     Route: 048
     Dates: start: 20080328
  3. ZOLOFT [Concomitant]
     Route: 048
  4. SINGULAIR [Concomitant]
  5. ALAVERT [Concomitant]

REACTIONS (1)
  - SPEECH DISORDER [None]
